FAERS Safety Report 12600698 (Version 3)
Quarter: 2017Q4

REPORT INFORMATION
  Report Type: Spontaneous
  Country: US (occurrence: US)
  Receive Date: 20160727
  Receipt Date: 20171226
  Transmission Date: 20180320
  Serious: Yes (Hospitalization, Other)
  Sender: FDA-Public Use
  Company Number: US-009507513-1607USA010890

PATIENT
  Sex: Female
  Weight: 89.8 kg

DRUGS (1)
  1. NUVARING [Suspect]
     Active Substance: ETHINYL ESTRADIOL\ETONOGESTREL
     Indication: CONTRACEPTION
     Dosage: 1 DF, QM
     Route: 067
     Dates: start: 201401, end: 201406

REACTIONS (11)
  - Abdominal pain lower [Unknown]
  - Ovarian cyst [Unknown]
  - Thrombophlebitis [Unknown]
  - Phlebitis [Unknown]
  - Peripheral venous disease [Unknown]
  - Gait disturbance [Unknown]
  - Pulmonary embolism [Unknown]
  - Atrioventricular block first degree [Unknown]
  - Deep vein thrombosis [Unknown]
  - Migraine [Unknown]
  - Deep vein thrombosis [Unknown]

NARRATIVE: CASE EVENT DATE: 2014
